FAERS Safety Report 22019564 (Version 1)
Quarter: 2023Q1

REPORT INFORMATION
  Report Type: Report from Study
  Country: US (occurrence: US)
  Receive Date: 20230222
  Receipt Date: 20230222
  Transmission Date: 20230417
  Serious: Yes (Other)
  Sender: FDA-Public Use
  Company Number: US-ABBVIE-4313553

PATIENT
  Age: 45 Year
  Sex: Male

DRUGS (1)
  1. RINVOQ [Suspect]
     Active Substance: UPADACITINIB
     Indication: Colitis ulcerative
     Dosage: ER?STRENGTH-15 MG
     Route: 048
     Dates: start: 202211

REACTIONS (5)
  - Polypectomy [Unknown]
  - Frequent bowel movements [Unknown]
  - Proctalgia [Recovered/Resolved]
  - Frequent bowel movements [Recovered/Resolved]
  - Haematochezia [Unknown]

NARRATIVE: CASE EVENT DATE: 20221101
